FAERS Safety Report 9608549 (Version 3)
Quarter: 2013Q4

REPORT INFORMATION
  Report Type: Spontaneous
  Country: PL (occurrence: PL)
  Receive Date: 20131009
  Receipt Date: 20131211
  Transmission Date: 20140711
  Serious: Yes (Death)
  Sender: FDA-Public Use
  Company Number: PL-PFIZER INC-2013287796

PATIENT
  Age: 64 Year
  Sex: Male

DRUGS (3)
  1. SEVREDOL [Suspect]
     Indication: ADENOCARCINOMA GASTRIC
     Dosage: 20 MG, EVERY 4 HRS
     Route: 048
     Dates: start: 20130228, end: 20130228
  2. SEVREDOL [Suspect]
     Dosage: 20 MG, SINGLE
     Route: 048
     Dates: start: 20130301, end: 20130301
  3. TRAMADOL HYDROCHLORIDE [Concomitant]
     Dosage: UNK
     Dates: start: 20130227

REACTIONS (8)
  - Drug level increased [Fatal]
  - Cardiac arrest [Fatal]
  - Brain oedema [Fatal]
  - Oedema [Fatal]
  - Emphysema [Fatal]
  - Asthenia [Unknown]
  - Hypoaesthesia [Unknown]
  - Head titubation [Unknown]
